FAERS Safety Report 14110446 (Version 1)
Quarter: 2017Q4

REPORT INFORMATION
  Report Type: Spontaneous
  Country: TR (occurrence: TR)
  Receive Date: 20171020
  Receipt Date: 20171020
  Transmission Date: 20180321
  Serious: Yes (Other)
  Sender: FDA-Public Use
  Company Number: TR-ASTELLAS-2017US042116

PATIENT
  Age: 41 Year
  Sex: Male
  Weight: 164 kg

DRUGS (1)
  1. TARCEVA [Suspect]
     Active Substance: ERLOTINIB HYDROCHLORIDE
     Indication: LUNG NEOPLASM MALIGNANT
     Route: 048
     Dates: start: 20170815

REACTIONS (7)
  - Pain of skin [Unknown]
  - Acne [Unknown]
  - Sunburn [Recovered/Resolved]
  - Xerophthalmia [Recovered/Resolved]
  - Dry skin [Recovered/Resolved]
  - Rash [Unknown]
  - Diarrhoea [Recovered/Resolved]

NARRATIVE: CASE EVENT DATE: 20170901
